FAERS Safety Report 11312604 (Version 1)
Quarter: 2015Q3

REPORT INFORMATION
  Report Type: Spontaneous
  Country: US (occurrence: US)
  Receive Date: 20150727
  Receipt Date: 20150727
  Transmission Date: 20151125
  Serious: No
  Sender: FDA-Public Use
  Company Number: US-ABBVIE-15P-163-1333234-00

PATIENT
  Sex: Female
  Weight: 62.2 kg

DRUGS (4)
  1. SYNTHROID [Suspect]
     Active Substance: LEVOTHYROXINE SODIUM
     Dosage: SYNTHROID ?75 MCG
     Route: 048
     Dates: start: 1987, end: 2009
  2. LEVOTHYROXINE. [Suspect]
     Active Substance: LEVOTHYROXINE
     Indication: THYROID FUNCTION TEST ABNORMAL
     Dosage: GENERIC LEVOTHYROXINE UNKNOWN MANUFACTURER 75MCG
     Route: 048
     Dates: start: 2009, end: 201303
  3. VERAMYST [Concomitant]
     Active Substance: FLUTICASONE FUROATE
     Indication: HYPERSENSITIVITY
     Route: 065
  4. SYNTHROID [Suspect]
     Active Substance: LEVOTHYROXINE SODIUM
     Indication: THYROID FUNCTION TEST ABNORMAL
     Dosage: SYNTHROID 75 MCG
     Route: 048
     Dates: start: 201303

REACTIONS (1)
  - Thyroid function test abnormal [Recovered/Resolved]

NARRATIVE: CASE EVENT DATE: 2009
